FAERS Safety Report 26032092 (Version 1)
Quarter: 2025Q4

REPORT INFORMATION
  Report Type: Spontaneous
  Country: US (occurrence: US)
  Receive Date: 20251112
  Receipt Date: 20251112
  Transmission Date: 20260117
  Serious: No
  Sender: ROCHE
  Company Number: US-ROCHE-10000430697

PATIENT
  Sex: Female

DRUGS (7)
  1. XOLAIR PFS [Suspect]
     Active Substance: OMALIZUMAB
     Indication: Asthma
     Route: 058
     Dates: start: 202507
  2. XOLAIR PFS [Suspect]
     Active Substance: OMALIZUMAB
  3. SODIUM CHLORIDE [Concomitant]
     Active Substance: SODIUM CHLORIDE
  4. EPINEPHRINE auto-inj [Concomitant]
  5. MAGNESIUM SULFATE [Concomitant]
     Active Substance: MAGNESIUM SULFATE
  6. HEPARIN [Concomitant]
     Active Substance: HEPARIN SODIUM
  7. JAKAFI [Concomitant]
     Active Substance: RUXOLITINIB

REACTIONS (2)
  - Headache [Unknown]
  - Malaise [Unknown]
